FAERS Safety Report 24571778 (Version 2)
Quarter: 2024Q4

REPORT INFORMATION
  Report Type: Spontaneous
  Country: CA (occurrence: CA)
  Receive Date: 20241101
  Receipt Date: 20241230
  Transmission Date: 20250115
  Serious: Yes (Other)
  Sender: CHEPLAPHARM
  Company Number: CA-AstraZeneca-CH-00711622A

PATIENT
  Age: 62 Year
  Sex: Female
  Weight: 43 kg

DRUGS (28)
  1. QUETIAPINE [Suspect]
     Active Substance: QUETIAPINE
     Indication: Product used for unknown indication
  2. OLANZAPINE [Suspect]
     Active Substance: OLANZAPINE
     Indication: Product used for unknown indication
     Dosage: 10 MILLIGRAM, QD?DAILY DOSE: 10 MILLIGRAM
     Route: 048
  3. OLANZAPINE [Suspect]
     Active Substance: OLANZAPINE
     Indication: Product used for unknown indication
     Dosage: 10 MILLIGRAM, BID?DAILY DOSE: 20 MILLIGRAM
     Route: 048
  4. CLOZAPINE [Suspect]
     Active Substance: CLOZAPINE
     Indication: Product used for unknown indication
     Dosage: 75 MILLIGRAM, BID?DAILY DOSE: 150 MILLIGRAM
  5. CLOZAPINE [Suspect]
     Active Substance: CLOZAPINE
     Indication: Product used for unknown indication
  6. CHOLECALCIFEROL [Suspect]
     Active Substance: CHOLECALCIFEROL
  7. RISPERIDONE [Suspect]
     Active Substance: RISPERIDONE
     Dosage: 1.5 MILLIGRAM
  8. RISPERIDONE [Suspect]
     Active Substance: RISPERIDONE
     Dosage: 4 UNK
  9. KRILL OIL [Suspect]
     Active Substance: DIETARY SUPPLEMENT\KRILL OIL
  10. METHYLCOBALAMIN [Suspect]
     Active Substance: METHYLCOBALAMIN
  11. NICOTINAMIDE [Suspect]
     Active Substance: NIACINAMIDE
  12. RIBOFLAVIN [Suspect]
     Active Substance: RIBOFLAVIN
  13. SERINE [Suspect]
     Active Substance: SERINE
  14. PANTOTHENIC ACID [Suspect]
     Active Substance: PANTOTHENIC ACID
  15. PYRIDOXINE [Suspect]
     Active Substance: PYRIDOXINE
  16. THIAMINE [Suspect]
     Active Substance: THIAMINE
  17. TOCOPHEROL [Suspect]
     Active Substance: TOCOPHEROL
  18. LEVOMEFOLIC ACID [Suspect]
     Active Substance: LEVOMEFOLIC ACID
  19. ACETAMINOPHEN [Concomitant]
     Active Substance: ACETAMINOPHEN
     Indication: Product used for unknown indication
     Dosage: UNK, QID
  20. DIPHENHYDRAMINE HYDROCHLORIDE [Concomitant]
     Active Substance: DIPHENHYDRAMINE HYDROCHLORIDE
     Dosage: 25 MILLIGRAM
  21. LACTULOSE [Concomitant]
     Active Substance: LACTULOSE
     Indication: Constipation
     Dosage: 15 MILLILITER
  22. LACTULOSE [Concomitant]
     Active Substance: LACTULOSE
     Indication: Constipation
     Dosage: 20 MILLILITER
  23. LACTULOSE [Concomitant]
     Active Substance: LACTULOSE
     Indication: Constipation
     Dosage: 30 MILLILITER
  24. MIRTAZAPINE [Concomitant]
     Active Substance: MIRTAZAPINE
     Indication: Product used for unknown indication
     Dosage: 7.5 MILLIGRAM
  25. BENYLIN DM [Concomitant]
     Active Substance: DEXTROMETHORPHAN HYDROBROMIDE\GUAIFENESIN
     Indication: Antitussive therapy
     Dosage: UNK
  26. BISACODYL [Concomitant]
     Active Substance: BISACODYL
     Indication: Product used for unknown indication
     Dosage: 1 DOSAGE FORM
  27. SENNOSIDES [Concomitant]
     Active Substance: SENNOSIDES
  28. VENLAFAXINE HYDROCHLORIDE [Concomitant]
     Active Substance: VENLAFAXINE HYDROCHLORIDE

REACTIONS (3)
  - Neutropenia [Recovered/Resolved]
  - Drug resistance [Recovered/Resolved]
  - Oropharyngeal pain [Recovered/Resolved]
